FAERS Safety Report 19310550 (Version 2)
Quarter: 2021Q3

REPORT INFORMATION
  Report Type: Spontaneous
  Country: US (occurrence: US)
  Receive Date: 20210526
  Receipt Date: 20210922
  Transmission Date: 20211014
  Serious: Yes (Other)
  Sender: FDA-Public Use
  Company Number: US-COOPERSURGICAL, INC.-US-2021CPS001381

PATIENT
  Age: 37 Year
  Sex: Female
  Weight: 103.86 kg

DRUGS (2)
  1. PARAGARD T 380A [Suspect]
     Active Substance: COPPER
     Dosage: UNK
     Route: 015
     Dates: start: 20210521
  2. PARAGARD T 380A [Suspect]
     Active Substance: COPPER
     Indication: CONTRACEPTION
     Dosage: UNK
     Route: 015
     Dates: start: 20160105, end: 20210521

REACTIONS (6)
  - Pelvic pain [Recovered/Resolved]
  - Device breakage [Recovered/Resolved with Sequelae]
  - Dysmenorrhoea [Unknown]
  - Foreign body in reproductive tract [Recovered/Resolved with Sequelae]
  - Device expulsion [Recovered/Resolved with Sequelae]
  - Complication of device removal [Recovered/Resolved with Sequelae]

NARRATIVE: CASE EVENT DATE: 20210505
